FAERS Safety Report 5875957-2 (Version None)
Quarter: 2008Q3

REPORT INFORMATION
  Report Type: 
  Country: None (occurrence: None)
  Receive Date: 20080905
  Receipt Date: 20080829
  Transmission Date: 20090109
  Serious: Yes (Life-Threatening)
  Sender: FDA-Public Use
  Company Number: 08GB001082

PATIENT
  Age: 52 Year
  Sex: Female

DRUGS (4)
  1. PAROXETINE HCL [Suspect]
     Indication: DEPRESSION
     Dosage: 20 MG,ORAL
     Route: 048
     Dates: start: 20080620, end: 20080803
  2. ALBUTEROL SPIROS [Concomitant]
  3. SERETIDE MITE [Concomitant]
  4. SALMETEROL XINAFOATE [Concomitant]

REACTIONS (1)
  - SUPRAVENTRICULAR TACHYCARDIA [None]
